FAERS Safety Report 23924211 (Version 2)
Quarter: 2024Q2

REPORT INFORMATION
  Report Type: Report from Study
  Country: TR (occurrence: TR)
  Receive Date: 20240531
  Receipt Date: 20240606
  Transmission Date: 20240715
  Serious: Yes (Hospitalization, Other)
  Sender: FDA-Public Use
  Company Number: TR-002147023-NVSC2024TR111651

PATIENT
  Age: 30 Year
  Sex: Female
  Weight: 43 kg

DRUGS (1)
  1. AFINITOR [Suspect]
     Active Substance: EVEROLIMUS
     Indication: Seizure
     Dosage: 8 MG (4 TB)
     Route: 048
     Dates: start: 20240206

REACTIONS (1)
  - Seizure [Recovered/Resolved with Sequelae]
